FAERS Safety Report 24627306 (Version 1)
Quarter: 2024Q4

REPORT INFORMATION
  Report Type: Other
  Country: VN (occurrence: VN)
  Receive Date: 20241116
  Receipt Date: 20241116
  Transmission Date: 20250115
  Serious: Yes (Hospitalization)
  Sender: LGM PHARMA SOLUTIONS, LLC
  Company Number: VN-LGM Pharma Solutions, LLC-2165159

PATIENT
  Age: 39 Year
  Sex: Female
  Weight: 60 kg

DRUGS (1)
  1. ASPIRIN [Suspect]
     Active Substance: ASPIRIN
     Indication: Pre-eclampsia

REACTIONS (5)
  - Spinal epidural haematoma [Recovering/Resolving]
  - Hemiplegia [Recovered/Resolved]
  - Anal sphincter atony [Recovered/Resolved]
  - Muscular weakness [Recovered/Resolved]
  - Headache [Recovered/Resolved]
